FAERS Safety Report 7048528-2 (Version None)
Quarter: 2010Q4

REPORT INFORMATION
  Report Type: 
  Country: None (occurrence: None)
  Receive Date: 20101008
  Receipt Date: 20100930
  Transmission Date: 20110411
  Serious: Yes (Life-Threatening, Hospitalization)
  Sender: FDA-Public Use
  Company Number: 2010MA003151

PATIENT
  Age: 22 Year
  Sex: Male

DRUGS (1)
  1. FEVERALL [Suspect]

REACTIONS (14)
  - ACUTE HEPATIC FAILURE [None]
  - CONTINUOUS HAEMODIAFILTRATION [None]
  - ENCEPHALOPATHY [None]
  - FAT NECROSIS [None]
  - GENERAL PHYSICAL HEALTH DETERIORATION [None]
  - HEPATIC STEATOSIS [None]
  - LIVER TRANSPLANT [None]
  - LIVER TRANSPLANT REJECTION [None]
  - OVERDOSE [None]
  - PANCREATIC NECROSIS [None]
  - PANCREATITIS ACUTE [None]
  - SEPSIS [None]
  - TACHYCARDIA [None]
  - WHITE BLOOD CELL COUNT INCREASED [None]
